FAERS Safety Report 5089878-9 (Version None)
Quarter: 2006Q3

REPORT INFORMATION
  Report Type: 
  Country: None (occurrence: None)
  Receive Date: 20060727
  Receipt Date: 20060518
  Transmission Date: 20061208
  Serious: Yes (Other)
  Sender: FDA-Public Use
  Company Number: 2006067438

PATIENT
  Age: 82 Year
  Sex: Female
  Weight: 63.5036 kg

DRUGS (6)
  1. LYRICA [Suspect]
     Indication: DIABETIC NEUROPATHY
     Dosage: 225 MG (75 MG,3 IN 1 D)
  2. GLYBURIDE [Concomitant]
  3. AVANDIA [Concomitant]
  4. GLUCOPHAGE [Concomitant]
  5. ZOCOR [Concomitant]
  6. LEXAPRO [Concomitant]

REACTIONS (3)
  - MUSCULAR WEAKNESS [None]
  - SENSORY LOSS [None]
  - THERAPY REGIMEN CHANGED [None]
